FAERS Safety Report 7687954-5 (Version None)
Quarter: 2011Q3

REPORT INFORMATION
  Report Type: 
  Country: None (occurrence: None)
  Receive Date: 20110817
  Receipt Date: 20110804
  Transmission Date: 20111222
  Serious: Yes (Hospitalization)
  Sender: FDA-Public Use
  Company Number: JP-ELI_LILLY_AND_COMPANY-JP201108000898

PATIENT
  Sex: Female

DRUGS (1)
  1. FORTEO [Suspect]
     Dosage: UNK
     Route: 058

REACTIONS (8)
  - MUSCULAR WEAKNESS [None]
  - FATIGUE [None]
  - DYSPHAGIA [None]
  - INFLAMMATION [None]
  - PRODUCTIVE COUGH [None]
  - DYSPNOEA [None]
  - PYREXIA [None]
  - INCORRECT STORAGE OF DRUG [None]
